FAERS Safety Report 9684631 (Version 5)
Quarter: 2013Q4

REPORT INFORMATION
  Report Type: Spontaneous
  Country: US (occurrence: None)
  Receive Date: 20131108
  Receipt Date: 20131205
  Transmission Date: 20140711
  Serious: Yes (Death, Other)
  Sender: FDA-Public Use
  Company Number: AUR-APL-2013-09280

PATIENT
  Age: 29 Year
  Sex: Female

DRUGS (5)
  1. QUETIAPINE [Suspect]
     Indication: PRODUCT USED FOR UNKNOWN INDICATION
  2. ESCITALOPRAM (ESCITALOPRAM) [Suspect]
     Indication: PRODUCT USED FOR UNKNOWN INDICATION
  3. IBUPROFEN (IBUPROFEN) [Suspect]
     Indication: PRODUCT USED FOR UNKNOWN INDICATION
  4. DESVENLAFAXINE SUCCINATE [Suspect]
     Indication: PRODUCT USED FOR UNKNOWN INDICATION
  5. BUPROPION [Suspect]
     Indication: PRODUCT USED FOR UNKNOWN INDICATION

REACTIONS (19)
  - Tachycardia [None]
  - Hypotension [None]
  - Overdose [None]
  - Cardiac arrest [None]
  - Brain injury [None]
  - Body temperature decreased [None]
  - Heart rate increased [None]
  - Mydriasis [None]
  - Areflexia [None]
  - Gastrointestinal sounds abnormal [None]
  - Peripheral coldness [None]
  - Dry skin [None]
  - pH body fluid abnormal [None]
  - Oxygen saturation increased [None]
  - Sinus tachycardia [None]
  - Pulseless electrical activity [None]
  - Coma scale abnormal [None]
  - Circulatory collapse [None]
  - Blood lactic acid increased [None]
